FAERS Safety Report 7549223-3 (Version None)
Quarter: 2011Q2

REPORT INFORMATION
  Report Type: 
  Country: None (occurrence: None)
  Receive Date: 20110615
  Receipt Date: 20110601
  Transmission Date: 20111010
  Serious: Yes (Other)
  Sender: FDA-Public Use
  Company Number: PHHY2011CA41280

PATIENT
  Sex: Male

DRUGS (4)
  1. ANGIOTENSIN II ANTAGONISTS [Concomitant]
  2. DIURETICS [Concomitant]
  3. ALISKIREN [Suspect]
     Indication: HYPERTENSION
     Dosage: 300 MG, DAILY
     Route: 048
     Dates: start: 20091208, end: 20100601
  4. ACE INHIBITOR NOS [Concomitant]

REACTIONS (3)
  - GLYCOSYLATED HAEMOGLOBIN INCREASED [None]
  - URINE ALBUMIN/CREATININE RATIO INCREASED [None]
  - RASH [None]
